FAERS Safety Report 6815182-1 (Version None)
Quarter: 2010Q2

REPORT INFORMATION
  Report Type: 
  Country: None (occurrence: None)
  Receive Date: 20100630
  Receipt Date: 20100630
  Transmission Date: 20101027
  Serious: Yes (Congenital Anomaly, Other)
  Sender: FDA-Public Use
  Company Number: None

PATIENT
  Age: 60 Year
  Sex: Female
  Weight: 68.0396 kg

DRUGS (1)
  1. ABILIFY [Suspect]
     Dates: start: 20090805, end: 20090915

REACTIONS (2)
  - DYSKINESIA [None]
  - MASTICATION DISORDER [None]
